FAERS Safety Report 5162894-4 (Version None)
Quarter: 2006Q4

REPORT INFORMATION
  Report Type: 
  Country: None (occurrence: None)
  Receive Date: 20061121
  Receipt Date: 20061108
  Transmission Date: 20070319
  Serious: Yes (Death, Other)
  Sender: FDA-Public Use
  Company Number: 2006US-03750

PATIENT
  Age: 17 Year

DRUGS (1)
  1. ISOTRETINOIN [Suspect]
     Dosage: 40 MG

REACTIONS (2)
  - NEOPLASM PROGRESSION [None]
  - OFF LABEL USE [None]
